FAERS Safety Report 8280743-2 (Version None)
Quarter: 2012Q2

REPORT INFORMATION
  Report Type: 
  Country: None (occurrence: None)
  Receive Date: 20120412
  Receipt Date: 20120403
  Transmission Date: 20120825
  Serious: Yes (Life-Threatening, Hospitalization)
  Sender: FDA-Public Use
  Company Number: BE-ABBOTT-12P-013-0921696-00

PATIENT
  Sex: Female

DRUGS (11)
  1. SCOPOLAMINE [Concomitant]
     Indication: ABDOMINAL PAIN
     Dosage: 1 OR 2 TABLETS, 3 TO 5 TIMES A DAY
     Route: 048
  2. ACETAMINOPHEN [Concomitant]
     Indication: PAIN
     Route: 048
     Dates: start: 20120311
  3. BICLAR TABLETS [Interacting]
     Indication: PNEUMONIA
     Dosage: TWICE A DAY (2 TABLETS IN THE MORNING)INSTEAD OF 1 AS MENTIONED IN
     Route: 048
     Dates: start: 20120313, end: 20120321
  4. MEDROL [Concomitant]
     Indication: PRODUCT USED FOR UNKNOWN INDICATION
     Route: 048
  5. MOTILIUM [Interacting]
     Indication: NAUSEA
     Dosage: 1 OR 2 TABLETS, 3 OR 4 PER DAY INSTEAD OF 10MG, 3 TIMES A DAY
     Route: 048
     Dates: start: 20120311
  6. LYSOMUCIL [Concomitant]
     Indication: PULMONARY CONGESTION
     Route: 048
  7. PARACODINE [Concomitant]
     Indication: COUGH
     Route: 048
  8. ASPIRIN [Concomitant]
     Indication: CEREBROVASCULAR ACCIDENT PROPHYLAXIS
     Route: 048
  9. ARICEPT [Suspect]
     Indication: DEMENTIA ALZHEIMER'S TYPE
     Dosage: IN THE MORNING
     Route: 048
  10. PROTELOS [Concomitant]
     Indication: OSTEOPOROSIS
     Dosage: 1 (2 GRAM) SACHET IN THE EVENING
     Route: 048
  11. LEXOTAN [Concomitant]
     Indication: INSOMNIA
     Route: 048

REACTIONS (7)
  - ATRIAL FIBRILLATION [None]
  - TACHYARRHYTHMIA [None]
  - LOSS OF CONSCIOUSNESS [None]
  - RESPIRATORY TRACT INFECTION [None]
  - OXYGEN SATURATION DECREASED [None]
  - DRUG INTERACTION [None]
  - TORSADE DE POINTES [None]
